FAERS Safety Report 19826404 (Version 2)
Quarter: 2021Q3

REPORT INFORMATION
  Report Type: Report from Study
  Country: CL (occurrence: CL)
  Receive Date: 20210913
  Receipt Date: 20210924
  Transmission Date: 20211014
  Serious: Yes (Other)
  Sender: FDA-Public Use
  Company Number: CL-TAKEDA-2021TUS046405

PATIENT
  Age: 3 Year
  Sex: Male

DRUGS (4)
  1. OCTANATE [Concomitant]
     Active Substance: ANTIHEMOPHILIC FACTOR HUMAN
     Indication: FACTOR VIII DEFICIENCY
     Dosage: UNK
  2. FACTOR VIII INHIBITOR BYPASSING FRACTION; BAXJECT II NF [Suspect]
     Active Substance: ANTI-INHIBITOR COAGULANT COMPLEX
     Dosage: 50 TO 100 UF/ KG, 5/WEEK
     Route: 042
  3. FACTOR VIII INHIBITOR BYPASSING FRACTION; BAXJECT II NF [Suspect]
     Active Substance: ANTI-INHIBITOR COAGULANT COMPLEX
     Indication: FACTOR VIII DEFICIENCY
     Dosage: 50 TO 100 UF/ KG, 5/WEEK
     Route: 042
  4. FACTOR VIII INHIBITOR BYPASSING FRACTION; BAXJECT II NF [Suspect]
     Active Substance: ANTI-INHIBITOR COAGULANT COMPLEX
     Dosage: 50 TO 100 UF/ KG, 5/WEEK
     Route: 042

REACTIONS (15)
  - Joint injury [Recovering/Resolving]
  - Catheter site erythema [Unknown]
  - Catheter site bruise [Unknown]
  - Joint swelling [Recovering/Resolving]
  - Discomfort [Recovering/Resolving]
  - Joint range of motion decreased [Recovering/Resolving]
  - Haemarthrosis [Recovering/Resolving]
  - Gait disturbance [Recovering/Resolving]
  - Body temperature increased [Recovering/Resolving]
  - Irritability [Recovering/Resolving]
  - Haemorrhage [Recovering/Resolving]
  - Arthralgia [Recovering/Resolving]
  - Arthropathy [Recovering/Resolving]
  - Joint warmth [Recovering/Resolving]
  - Unevaluable event [Recovering/Resolving]

NARRATIVE: CASE EVENT DATE: 20210719
